FAERS Safety Report 17453656 (Version 1)
Quarter: 2020Q1

REPORT INFORMATION
  Report Type: Spontaneous
  Country: US (occurrence: US)
  Receive Date: 20200224
  Receipt Date: 20200224
  Transmission Date: 20200409
  Serious: No
  Sender: FDA-Public Use
  Company Number: US-VYERA PHARMACEUTICALS, LLC-2019VYE00039

PATIENT
  Age: 47 Year
  Sex: Male

DRUGS (2)
  1. DARAPRIM [Suspect]
     Active Substance: PYRIMETHAMINE
     Indication: TOXOPLASMOSIS
     Dosage: 8 TABLETS, INITIAL LOADING DOSE AS DIRECTED
     Route: 048
     Dates: start: 20190823, end: 20190823
  2. DARAPRIM [Suspect]
     Active Substance: PYRIMETHAMINE
     Dosage: 75 MG, 1X/DAY
     Route: 048
     Dates: start: 20190824, end: 20190830

REACTIONS (1)
  - Rash [Not Recovered/Not Resolved]

NARRATIVE: CASE EVENT DATE: 20190830
